FAERS Safety Report 5719549-4 (Version None)
Quarter: 2008Q2

REPORT INFORMATION
  Report Type: 
  Country: None (occurrence: None)
  Receive Date: 20080424
  Receipt Date: 20080417
  Transmission Date: 20081010
  Serious: Yes (Other)
  Sender: FDA-Public Use
  Company Number: 2008009840

PATIENT
  Age: 5 Year
  Sex: Male
  Weight: 20.4119 kg

DRUGS (1)
  1. ZYRTEC [Suspect]
     Indication: NASAL CONGESTION
     Dosage: 2 TABLETS, ONCE PER DAY, ORAL
     Route: 048
     Dates: start: 20080412, end: 20080415

REACTIONS (2)
  - ERYTHEMA [None]
  - SKIN BURNING SENSATION [None]
